FAERS Safety Report 7100080-9 (Version None)
Quarter: 2010Q4

REPORT INFORMATION
  Report Type: 
  Country: None (occurrence: None)
  Receive Date: 20101112
  Receipt Date: 20091023
  Transmission Date: 20110411
  Serious: Yes (Hospitalization)
  Sender: FDA-Public Use
  Company Number: A0813154A

PATIENT
  Age: 72 Year
  Sex: Male

DRUGS (10)
  1. COREG [Suspect]
     Route: 048
     Dates: start: 20080101
  2. METFORMIN [Concomitant]
  3. LASIX [Concomitant]
  4. GLIPIZIDE [Concomitant]
  5. LANTUS [Concomitant]
  6. DIOVAN [Concomitant]
  7. HYDROCODONE [Concomitant]
  8. AMLODIPINE [Concomitant]
  9. COUMADIN [Concomitant]
  10. SIMVASTATIN [Concomitant]

REACTIONS (1)
  - HEART RATE DECREASED [None]
